FAERS Safety Report 23467439 (Version 2)
Quarter: 2024Q1

REPORT INFORMATION
  Report Type: Report from Study
  Country: FR (occurrence: FR)
  Receive Date: 20240201
  Receipt Date: 20240202
  Transmission Date: 20240409
  Serious: Yes (Death, Other)
  Sender: FDA-Public Use
  Company Number: FR-DSJP-DSE-2024-104551

PATIENT
  Sex: Female

DRUGS (2)
  1. ENHERTU [Suspect]
     Active Substance: FAM-TRASTUZUMAB DERUXTECAN-NXKI
     Indication: HER2 low breast cancer
     Dosage: 4.4 MG/KG, CYCLIC
     Route: 065
  2. ENHERTU [Suspect]
     Active Substance: FAM-TRASTUZUMAB DERUXTECAN-NXKI
     Dosage: 4.4 MG/KG, CYCLIC
     Route: 065
     Dates: start: 20240102, end: 20240102

REACTIONS (8)
  - Generalised oedema [Fatal]
  - Pleural effusion [Fatal]
  - Shock [Fatal]
  - Respiratory distress [Fatal]
  - Multiple organ dysfunction syndrome [Fatal]
  - Neurological decompensation [Fatal]
  - Lung infiltration [Fatal]
  - Respiratory failure [Fatal]

NARRATIVE: CASE EVENT DATE: 20240110
